FAERS Safety Report 11165396 (Version 1)
Quarter: 2015Q2

REPORT INFORMATION
  Report Type: Spontaneous
  Country: US (occurrence: None)
  Receive Date: 20150603
  Receipt Date: 20150603
  Transmission Date: 20150821
  Serious: Yes (Other)
  Sender: FDA-Public Use
  Company Number: None

PATIENT
  Age: 52 Year
  Sex: Female

DRUGS (5)
  1. LEXAPRO [Concomitant]
     Active Substance: ESCITALOPRAM OXALATE
  2. MINOCYCLINE [Concomitant]
     Active Substance: MINOCYCLINE\MINOCYCLINE HYDROCHLORIDE
  3. PRILOSEC [Concomitant]
     Active Substance: OMEPRAZOLE MAGNESIUM
  4. CONTRAVE [Suspect]
     Active Substance: BUPROPION HYDROCHLORIDE\NALTREXONE HYDROCHLORIDE
     Indication: WEIGHT DECREASED
     Dosage: 1 PILL; INCREASED DOSAGE
     Route: 048
  5. XAZAL [Concomitant]

REACTIONS (8)
  - Chest discomfort [None]
  - Dizziness [None]
  - Vomiting [None]
  - Hyperhidrosis [None]
  - Tremor [None]
  - Nausea [None]
  - Arthralgia [None]
  - Chills [None]

NARRATIVE: CASE EVENT DATE: 20150524
